FAERS Safety Report 25638781 (Version 3)
Quarter: 2025Q4

REPORT INFORMATION
  Report Type: Spontaneous
  Country: US (occurrence: US)
  Receive Date: 20250804
  Receipt Date: 20251128
  Transmission Date: 20260117
  Serious: Yes (Hospitalization)
  Sender: AMGEN
  Company Number: US-AMGEN-USASP2025152470

PATIENT
  Age: 3 Year
  Sex: Female
  Weight: 12.698 kg

DRUGS (3)
  1. BLINCYTO [Suspect]
     Active Substance: BLINATUMOMAB
     Indication: Acute lymphocytic leukaemia
     Dosage: 8.6 MICROGRAM
     Route: 065
     Dates: start: 20250523, end: 2025
  2. BLINCYTO [Suspect]
     Active Substance: BLINATUMOMAB
     Dosage: 35 MICROGRAM, QD, CONTINOUS
     Route: 065
     Dates: end: 20250729
  3. BLINCYTO [Suspect]
     Active Substance: BLINATUMOMAB
     Dosage: 8.7 MICROGRAM
     Route: 065
     Dates: start: 20250829

REACTIONS (3)
  - Hallucination [Unknown]
  - Seizure [Unknown]
  - Incorrect dose administered [Unknown]

NARRATIVE: CASE EVENT DATE: 20250729
